FAERS Safety Report 7213304-4 (Version None)
Quarter: 2011Q1

REPORT INFORMATION
  Report Type: 
  Country: None (occurrence: None)
  Receive Date: 20110106
  Receipt Date: 20110103
  Transmission Date: 20110831
  Serious: Yes (Other)
  Sender: FDA-Public Use
  Company Number: CA-US-EMD SERONO, INC.-230242J08CAN

PATIENT
  Sex: Female

DRUGS (2)
  1. REBIF [Suspect]
     Indication: RELAPSING-REMITTING MULTIPLE SCLEROSIS
     Dates: start: 20030207, end: 20090220
  2. REBIF [Suspect]
     Dates: start: 20090223, end: 20101201

REACTIONS (8)
  - SENSORY DISTURBANCE [None]
  - COLON CANCER [None]
  - CHILLS [None]
  - PERIPHERAL COLDNESS [None]
  - WHITE BLOOD CELL COUNT ABNORMAL [None]
  - FEELING HOT [None]
  - PAIN IN EXTREMITY [None]
  - RED BLOOD CELL COUNT ABNORMAL [None]
